FAERS Safety Report 20532140 (Version 1)
Quarter: 2022Q1

REPORT INFORMATION
  Report Type: Spontaneous
  Country: US (occurrence: None)
  Receive Date: 20220301
  Receipt Date: 20220301
  Transmission Date: 20220423
  Serious: Yes (Hospitalization)
  Sender: FDA-Public Use
  Company Number: None

PATIENT
  Age: 73 Year
  Sex: Female
  Weight: 63.5 kg

DRUGS (2)
  1. CARBOPLATIN [Suspect]
     Active Substance: CARBOPLATIN
     Dates: end: 20220131
  2. TAXOL [Suspect]
     Active Substance: PACLITAXEL
     Dates: end: 20220131

REACTIONS (7)
  - Female genital tract fistula [None]
  - Disease progression [None]
  - Diarrhoea [None]
  - Vaginal discharge [None]
  - Vaginal flatulence [None]
  - Abdominal pain [None]
  - Unhealthy lifestyle [None]

NARRATIVE: CASE EVENT DATE: 20220216
